FAERS Safety Report 16012029 (Version 1)
Quarter: 2019Q1

REPORT INFORMATION
  Report Type: Spontaneous
  Country: US (occurrence: US)
  Receive Date: 20190226
  Receipt Date: 20190226
  Transmission Date: 20190418
  Serious: Yes (Disabling)
  Sender: FDA-Public Use
  Company Number: None

PATIENT
  Age: 82 Year
  Sex: Female
  Weight: 63 kg

DRUGS (5)
  1. LISINOPRIL. [Concomitant]
     Active Substance: LISINOPRIL
  2. ESTRADIOL 0.2 MG/ML CREAM [Suspect]
     Active Substance: ESTRADIOL
     Indication: VULVITIS
     Route: 061
     Dates: start: 20190214, end: 20190223
  3. VIT. D [Concomitant]
  4. FLAXSEED [Concomitant]
     Active Substance: FLAX SEED
  5. B50 COMPLEX AND MAGNESIUM [Concomitant]

REACTIONS (3)
  - Rash pustular [None]
  - Proctalgia [None]
  - Inflammation [None]

NARRATIVE: CASE EVENT DATE: 20190214
